FAERS Safety Report 19867038 (Version 1)
Quarter: 2021Q3

REPORT INFORMATION
  Report Type: Report from Study
  Country: IN (occurrence: IN)
  Receive Date: 20210922
  Receipt Date: 20210922
  Transmission Date: 20211014
  Serious: Yes (Death, Hospitalization)
  Sender: FDA-Public Use
  Company Number: NVSC2020IN095028

PATIENT
  Age: 7 Year
  Sex: Female

DRUGS (2)
  1. REVOLADE [Suspect]
     Active Substance: ELTROMBOPAG OLAMINE
     Indication: APLASTIC ANAEMIA
     Dosage: 50 MG, QD
     Route: 048
     Dates: start: 20200319, end: 20210211
  2. REVOLADE [Suspect]
     Active Substance: ELTROMBOPAG OLAMINE
     Dosage: 75 MG, QD
     Route: 048
     Dates: start: 20210215

REACTIONS (3)
  - Platelet count decreased [Unknown]
  - Pyrexia [Not Recovered/Not Resolved]
  - Death [Fatal]

NARRATIVE: CASE EVENT DATE: 202003
